FAERS Safety Report 9878772 (Version 1)
Quarter: 2014Q1

REPORT INFORMATION
  Report Type: Spontaneous
  Country: US (occurrence: US)
  Receive Date: 20140206
  Receipt Date: 20140206
  Transmission Date: 20141002
  Serious: No
  Sender: FDA-Public Use
  Company Number: US-009507513-1402USA000426

PATIENT
  Age: 57 Year
  Sex: Female

DRUGS (1)
  1. SINGULAIR [Suspect]
     Indication: SINUSITIS
     Dosage: 5 MG, UNK
     Route: 048
     Dates: start: 200901

REACTIONS (2)
  - Sinusitis [Recovered/Resolved]
  - Incorrect dose administered [Unknown]
